FAERS Safety Report 4945141-5 (Version None)
Quarter: 2006Q1

REPORT INFORMATION
  Report Type: 
  Country: None (occurrence: None)
  Receive Date: 20060117
  Receipt Date: 20050218
  Transmission Date: 20060701
  Serious: No
  Sender: FDA-Public Use
  Company Number: 05P-163-0291671-00

PATIENT
  Age: 19 Year
  Sex: Male

DRUGS (5)
  1. DILAUDID [Suspect]
     Indication: PAIN
     Dosage: 12 MG, IN 10 HOURS, INTRAVENOUS
     Route: 042
     Dates: start: 20050106, end: 20050107
  2. DIPHENHYDRAMINE HYDROCHLORIDE [Concomitant]
  3. PROMETHAZINE [Concomitant]
  4. FAMOTIDINE [Concomitant]
  5. CEFTRIAXONE [Concomitant]

REACTIONS (4)
  - HEPATIC ENZYME INCREASED [None]
  - LABORATORY TEST ABNORMAL [None]
  - OVERDOSE [None]
  - RESPIRATORY ARREST [None]
